FAERS Safety Report 19320607 (Version 2)
Quarter: 2021Q3

REPORT INFORMATION
  Report Type: Report from Study
  Country: DE (occurrence: DE)
  Receive Date: 20210527
  Receipt Date: 20210719
  Transmission Date: 20211014
  Serious: Yes (Other)
  Sender: FDA-Public Use
  Company Number: DE-TAKEDA-2020TUS046257

PATIENT
  Age: 60 Year
  Sex: Female

DRUGS (29)
  1. TEDUGLUTIDE [Suspect]
     Active Substance: TEDUGLUTIDE
     Dosage: 2.5 MILLIGRAM (0.03 MG/KG), 7 DOSES PER WEEK
     Route: 065
     Dates: start: 20170422, end: 20170424
  2. TEDUGLUTIDE [Suspect]
     Active Substance: TEDUGLUTIDE
     Dosage: 3.1 MILLIGRAM (0.04 MG/KG), 7 DOSES PER WEEK
     Route: 065
     Dates: start: 20170425, end: 20170427
  3. TEDUGLUTIDE [Suspect]
     Active Substance: TEDUGLUTIDE
     Dosage: 2.5 MILLIGRAM (0.03 MG/KG), 7 DOSES PER WEEK
     Route: 065
     Dates: start: 20170428, end: 20170508
  4. USTEKINUMAB [Concomitant]
     Active Substance: USTEKINUMAB
     Indication: CROHN^S DISEASE
     Dosage: 1 UNKNOWN, MONTHLY
     Route: 058
     Dates: start: 20200303, end: 20200709
  5. TEDUGLUTIDE [Suspect]
     Active Substance: TEDUGLUTIDE
     Indication: SHORT-BOWEL SYNDROME
     Dosage: 5 MILLIGRAM (0.06 MG/KG), 7 DOSES PER WEEK
     Route: 065
     Dates: start: 20161128, end: 20170515
  6. TEDUGLUTIDE [Suspect]
     Active Substance: TEDUGLUTIDE
     Dosage: 4 MILLIGRAM (0.05 MG/KG), 7 DOSES PER WEEK
     Route: 065
     Dates: start: 20170414, end: 20170421
  7. TEDUGLUTIDE [Suspect]
     Active Substance: TEDUGLUTIDE
     Dosage: 4 MILLIGRAM (0.05 MG/KG), 7 DOSES PER WEEK
     Route: 065
     Dates: start: 20170414, end: 20170421
  8. TEDUGLUTIDE [Suspect]
     Active Substance: TEDUGLUTIDE
     Dosage: 2.5 MILLIGRAM (0.03 MG/KG), 7 DOSES PER WEEK
     Route: 065
     Dates: start: 20170428, end: 20170508
  9. PRAMIPEXOLE. [Concomitant]
     Active Substance: PRAMIPEXOLE
     Indication: RESTLESS LEGS SYNDROME
     Dosage: 0.18 MILLIGRAM, BID
     Route: 048
     Dates: start: 2020
  10. TEDUGLUTIDE [Suspect]
     Active Substance: TEDUGLUTIDE
     Dosage: 2.5 MILLIGRAM (0.03 MG/KG), 7 DOSES PER WEEK
     Route: 065
     Dates: start: 20170316, end: 20170413
  11. TEDUGLUTIDE [Suspect]
     Active Substance: TEDUGLUTIDE
     Dosage: 4 MILLIGRAM (0.05 MG/KG), 7 DOSES PER WEEK
     Route: 065
     Dates: start: 20170414, end: 20170421
  12. TEDUGLUTIDE [Suspect]
     Active Substance: TEDUGLUTIDE
     Dosage: 2.5 MILLIGRAM (0.03 MG/KG), 7 DOSES PER WEEK
     Route: 065
     Dates: start: 20170422, end: 20170424
  13. TEDUGLUTIDE [Suspect]
     Active Substance: TEDUGLUTIDE
     Dosage: 2.5 MILLIGRAM (0.03 MG/KG), 7 DOSES PER WEEK
     Route: 065
     Dates: start: 20170428, end: 20170508
  14. AMLODIPIN [Concomitant]
     Active Substance: AMLODIPINE BESYLATE
     Indication: HYPERTENSION
     Dosage: 5 MILLIGRAM, QD
     Route: 048
     Dates: start: 20201021
  15. TEDUGLUTIDE [Suspect]
     Active Substance: TEDUGLUTIDE
     Dosage: 2.5 MILLIGRAM (0.03 MG/KG), 7 DOSES PER WEEK
     Route: 065
     Dates: start: 20170422, end: 20170424
  16. TEDUGLUTIDE [Suspect]
     Active Substance: TEDUGLUTIDE
     Dosage: 3.1 MILLIGRAM (0.04 MG/KG), 7 DOSES PER WEEK
     Route: 065
     Dates: start: 20170425, end: 20170427
  17. TEDUGLUTIDE [Suspect]
     Active Substance: TEDUGLUTIDE
     Dosage: 2.5 MILLIGRAM (0.03 MG/KG), 7 DOSES PER WEEK
     Route: 065
     Dates: start: 20170428, end: 20170508
  18. TEDUGLUTIDE [Suspect]
     Active Substance: TEDUGLUTIDE
     Dosage: 2.5 MILLIGRAM (0.03 MG/KG), 7 DOSES PER WEEK
     Route: 065
     Dates: start: 20170316, end: 20170413
  19. TEDUGLUTIDE [Suspect]
     Active Substance: TEDUGLUTIDE
     Indication: SHORT-BOWEL SYNDROME
     Dosage: 5 MILLIGRAM (0.06 MG/KG), 7 DOSES PER WEEK
     Route: 065
     Dates: start: 20161128, end: 20170515
  20. TEDUGLUTIDE [Suspect]
     Active Substance: TEDUGLUTIDE
     Indication: SHORT-BOWEL SYNDROME
     Dosage: 5 MILLIGRAM (0.06 MG/KG), 7 DOSES PER WEEK
     Route: 065
     Dates: start: 20161128, end: 20170515
  21. TEDUGLUTIDE [Suspect]
     Active Substance: TEDUGLUTIDE
     Dosage: 2.5 MILLIGRAM (0.03 MG/KG), 7 DOSES PER WEEK
     Route: 065
     Dates: start: 20170316, end: 20170413
  22. TEDUGLUTIDE [Suspect]
     Active Substance: TEDUGLUTIDE
     Dosage: 4 MILLIGRAM (0.05 MG/KG), 7 DOSES PER WEEK
     Route: 065
     Dates: start: 20170414, end: 20170421
  23. TEDUGLUTIDE [Suspect]
     Active Substance: TEDUGLUTIDE
     Dosage: 2.5 MILLIGRAM (0.03 MG/KG), 7 DOSES PER WEEK
     Route: 065
     Dates: start: 20170422, end: 20170424
  24. TEDUGLUTIDE [Suspect]
     Active Substance: TEDUGLUTIDE
     Dosage: 3.1 MILLIGRAM (0.04 MG/KG), 7 DOSES PER WEEK
     Route: 065
     Dates: start: 20170425, end: 20170427
  25. TEDUGLUTIDE [Suspect]
     Active Substance: TEDUGLUTIDE
     Dosage: 2.5 MILLIGRAM (0.03 MG/KG), 7 DOSES PER WEEK
     Route: 065
     Dates: start: 20170316, end: 20170413
  26. TEDUGLUTIDE [Suspect]
     Active Substance: TEDUGLUTIDE
     Dosage: 3.1 MILLIGRAM (0.04 MG/KG), 7 DOSES PER WEEK
     Route: 065
     Dates: start: 20170425, end: 20170427
  27. RAMIPRIL. [Concomitant]
     Active Substance: RAMIPRIL
     Indication: HYPERTENSION
     Dosage: 7.5 MILLIGRAM, QD
     Route: 048
     Dates: start: 20200716, end: 202010
  28. TEDUGLUTIDE [Suspect]
     Active Substance: TEDUGLUTIDE
     Indication: SHORT-BOWEL SYNDROME
     Dosage: 5 MILLIGRAM (0.06 MG/KG), 7 DOSES PER WEEK
     Route: 065
     Dates: start: 20161128, end: 20170515
  29. AZATHIOPRIN [Concomitant]
     Active Substance: AZATHIOPRINE
     Indication: CROHN^S DISEASE
     Dosage: 50 MILLIGRAM, QD
     Route: 048
     Dates: start: 20190109, end: 20190521

REACTIONS (3)
  - Crohn^s disease [Recovered/Resolved]
  - Osteochondrosis [Not Recovered/Not Resolved]
  - Hepatomegaly [Not Recovered/Not Resolved]

NARRATIVE: CASE EVENT DATE: 202010
